FAERS Safety Report 8551510-7 (Version None)
Quarter: 2012Q3

REPORT INFORMATION
  Report Type: 
  Country: None (occurrence: None)
  Receive Date: 20120730
  Receipt Date: 20120725
  Transmission Date: 20120928
  Serious: Yes (Other)
  Sender: FDA-Public Use
  Company Number: CA-ROCHE-1093020

PATIENT
  Age: 63 Year
  Sex: Female

DRUGS (10)
  1. URSODIOL [Concomitant]
     Route: 065
  2. VITAMIN D [Concomitant]
     Route: 065
  3. TYKERB [Suspect]
     Indication: PRODUCT USED FOR UNKNOWN INDICATION
     Route: 048
  4. RABEPRAZOLE SODIUM [Concomitant]
     Route: 065
  5. XELODA [Suspect]
     Indication: PRODUCT USED FOR UNKNOWN INDICATION
     Route: 065
  6. LORAZEPAM [Concomitant]
     Route: 065
  7. ACTONEL [Concomitant]
     Route: 065
  8. CALCIUM [Concomitant]
     Route: 065
  9. TYKERB [Suspect]
     Route: 048
  10. VITAMIN B6 [Concomitant]
     Route: 065

REACTIONS (7)
  - CHOLELITHIASIS [None]
  - ABDOMINAL DISTENSION [None]
  - JAUNDICE [None]
  - NEOPLASM MALIGNANT [None]
  - HEPATIC ENZYME INCREASED [None]
  - OEDEMA PERIPHERAL [None]
  - WEIGHT INCREASED [None]
